FAERS Safety Report 24108696 (Version 1)
Quarter: 2024Q3

REPORT INFORMATION
  Report Type: Spontaneous
  Country: CA (occurrence: CA)
  Receive Date: 20240718
  Receipt Date: 20240718
  Transmission Date: 20241017
  Serious: Yes (Other)
  Sender: CHEPLAPHARM
  Company Number: CA-ROCHE-10000022702

PATIENT
  Age: 41 Year
  Sex: Male

DRUGS (21)
  1. CAPECITABINE [Suspect]
     Active Substance: CAPECITABINE
     Indication: Hepatic cancer
  2. CAPECITABINE [Suspect]
     Active Substance: CAPECITABINE
     Indication: Parathyroid tumour malignant
  3. CAPECITABINE [Suspect]
     Active Substance: CAPECITABINE
     Indication: Lung neoplasm
  4. ETOPOSIDE [Suspect]
     Active Substance: ETOPOSIDE
     Indication: Lung neoplasm
  5. ETOPOSIDE [Suspect]
     Active Substance: ETOPOSIDE
     Indication: Hepatic cancer
  6. ETOPOSIDE [Suspect]
     Active Substance: ETOPOSIDE
     Indication: Parathyroid tumour malignant
  7. SORAFENIB [Suspect]
     Active Substance: SORAFENIB
     Indication: Lung neoplasm
  8. SORAFENIB [Suspect]
     Active Substance: SORAFENIB
     Indication: Hepatic cancer
  9. SORAFENIB [Suspect]
     Active Substance: SORAFENIB
     Indication: Parathyroid tumour malignant
  10. ZOLEDRONIC ACID [Suspect]
     Active Substance: ZOLEDRONIC ACID
     Indication: Lung neoplasm
  11. ZOLEDRONIC ACID [Suspect]
     Active Substance: ZOLEDRONIC ACID
     Indication: Hepatic cancer
  12. ZOLEDRONIC ACID [Suspect]
     Active Substance: ZOLEDRONIC ACID
     Indication: Parathyroid tumour malignant
  13. TEMOZOLOMIDE [Suspect]
     Active Substance: TEMOZOLOMIDE
     Indication: Lung neoplasm
  14. TEMOZOLOMIDE [Suspect]
     Active Substance: TEMOZOLOMIDE
     Indication: Hepatic cancer
  15. TEMOZOLOMIDE [Suspect]
     Active Substance: TEMOZOLOMIDE
     Indication: Parathyroid tumour malignant
  16. CISPLATIN [Suspect]
     Active Substance: CISPLATIN
     Indication: Lung neoplasm
  17. CISPLATIN [Suspect]
     Active Substance: CISPLATIN
     Indication: Parathyroid tumour malignant
  18. CISPLATIN [Suspect]
     Active Substance: CISPLATIN
     Indication: Hepatic cancer
  19. DENOSUMAB [Suspect]
     Active Substance: DENOSUMAB
     Indication: Parathyroid tumour malignant
  20. DENOSUMAB [Suspect]
     Active Substance: DENOSUMAB
     Indication: Lung neoplasm
  21. DENOSUMAB [Suspect]
     Active Substance: DENOSUMAB
     Indication: Hepatic cancer

REACTIONS (7)
  - Metastases to lymph nodes [Unknown]
  - Metastases to liver [Unknown]
  - Metastases to peritoneum [Unknown]
  - Hepatic encephalopathy [Unknown]
  - Blood bilirubin increased [Unknown]
  - Diarrhoea [Unknown]
  - Off label use [Unknown]
